FAERS Safety Report 8947500 (Version 2)
Quarter: 2014Q2

REPORT INFORMATION
  Report Type: Spontaneous
  Country: FR (occurrence: FR)
  Receive Date: 20121204
  Receipt Date: 20140507
  Transmission Date: 20141212
  Serious: Yes (Death, Life-Threatening)
  Sender: FDA-Public Use
  Company Number: FR-ROCHE-1162109

PATIENT
  Age: 52 Year
  Sex: Female

DRUGS (6)
  1. MABTHERA [Suspect]
     Indication: B-CELL LYMPHOMA
     Route: 042
     Dates: start: 20080402, end: 20080820
  2. ADRIAMYCIN [Suspect]
     Indication: B-CELL LYMPHOMA
     Route: 042
     Dates: start: 20080402, end: 20080820
  3. ETOPOSIDE [Suspect]
     Indication: B-CELL LYMPHOMA
     Route: 042
     Dates: start: 20080402, end: 20080820
  4. CYCLOPHOSPHAMIDE [Suspect]
     Indication: B-CELL LYMPHOMA
     Route: 042
     Dates: start: 20080402, end: 20080820
  5. PREDNISOLONE [Suspect]
     Indication: B-CELL LYMPHOMA
     Route: 042
     Dates: start: 20080402, end: 20080820
  6. INTERFERON ALFA-2A [Suspect]
     Indication: B-CELL LYMPHOMA
     Route: 058
     Dates: start: 20080402, end: 20090312

REACTIONS (1)
  - Metastatic malignant melanoma [Fatal]
